FAERS Safety Report 24939872 (Version 1)
Quarter: 2025Q1

REPORT INFORMATION
  Report Type: Spontaneous
  Country: US (occurrence: US)
  Receive Date: 20250207
  Receipt Date: 20250207
  Transmission Date: 20250408
  Serious: No
  Sender: ROCHE
  Company Number: US-ROCHE-10000197546

PATIENT
  Sex: Female

DRUGS (1)
  1. ACTEMRA [Suspect]
     Active Substance: TOCILIZUMAB
     Indication: Raynaud^s phenomenon
     Dosage: (STRENGTH : 162 MG/0.9M)
     Route: 058
     Dates: start: 202404

REACTIONS (3)
  - Off label use [Unknown]
  - Influenza [Unknown]
  - Bronchitis [Unknown]
